FAERS Safety Report 5141217-0 (Version None)
Quarter: 2006Q4

REPORT INFORMATION
  Report Type: 
  Country: None (occurrence: None)
  Receive Date: 20061101
  Receipt Date: 20061020
  Transmission Date: 20070319
  Serious: Yes (Death)
  Sender: FDA-Public Use
  Company Number: US-BAYER-200616098BWH

PATIENT
  Age: 43 Year
  Sex: Male

DRUGS (13)
  1. AVELOX [Suspect]
     Indication: DRUG USE FOR UNKNOWN INDICATION
     Route: 048
  2. CIPRO [Suspect]
     Indication: DRUG USE FOR UNKNOWN INDICATION
     Route: 048
  3. CIPRO XR [Suspect]
     Indication: DRUG USE FOR UNKNOWN INDICATION
     Route: 048
  4. GLUCOPHAGE [Concomitant]
  5. GLUCOTROL [Concomitant]
  6. PRAVACHOL [Concomitant]
  7. ACCUPRIL [Concomitant]
  8. FUROSEMIDE [Concomitant]
  9. PROTONIX [Concomitant]
  10. BACTRIM [Concomitant]
  11. AUGMENTIN '125' [Concomitant]
  12. POTASSIUM ACETATE [Concomitant]
  13. FORADIL [Concomitant]

REACTIONS (1)
  - DEATH [None]
